FAERS Safety Report 17004600 (Version 8)
Quarter: 2020Q1

REPORT INFORMATION
  Report Type: Spontaneous
  Country: US (occurrence: US)
  Receive Date: 20191107
  Receipt Date: 20200305
  Transmission Date: 20200409
  Serious: Yes (Hospitalization, Other)
  Sender: FDA-Public Use
  Company Number: US-PFIZER INC-2019385407

PATIENT
  Age: 71 Year
  Sex: Female
  Weight: 70 kg

DRUGS (10)
  1. IBRANCE [Suspect]
     Active Substance: PALBOCICLIB
     Dosage: 125 MG, CYCLIC (ONCE EVERY MORNING FOR 21 DAYS ON, THEN 1 WEEK OFF)
  2. IBRANCE [Suspect]
     Active Substance: PALBOCICLIB
     Dosage: 125 MG, CYCLIC (ONCE EVERY MORNING FOR 21 DAYS ON, THEN 1 WEEK OFF)
     Dates: end: 20191015
  3. IBRANCE [Suspect]
     Active Substance: PALBOCICLIB
     Indication: BREAST CANCER METASTATIC
     Dosage: 125 MG, CYCLIC (ONCE EVERY MORNING FOR 21 DAYS ON, THEN 1 WEEK OFF)
     Route: 048
     Dates: start: 20181220
  4. XGEVA [Concomitant]
     Active Substance: DENOSUMAB
     Dosage: UNK
     Dates: start: 201811, end: 201911
  5. ZOMETA [Concomitant]
     Active Substance: ZOLEDRONIC ACID
     Dosage: UNK
     Dates: start: 201811
  6. IBRANCE [Suspect]
     Active Substance: PALBOCICLIB
     Dosage: 125 MG, CYCLIC (ONCE EVERY MORNING FOR 21 DAYS ON, THEN 1 WEEK OFF)
  7. IBRANCE [Suspect]
     Active Substance: PALBOCICLIB
     Dosage: 125 MG, CYCLIC (ONCE EVERY MORNING FOR 21 DAYS ON, THEN 1 WEEK OFF)
  8. ZOMETA [Concomitant]
     Active Substance: ZOLEDRONIC ACID
     Dosage: UNK
     Dates: start: 201812
  9. FLUSODEX [Concomitant]
     Dosage: UNK
     Dates: start: 201811, end: 20191105
  10. IBRANCE [Suspect]
     Active Substance: PALBOCICLIB
     Dosage: 125 MG, CYCLIC (ONCE EVERY MORNING FOR 21 DAYS ON, THEN 1 WEEK OFF)

REACTIONS (5)
  - Renal failure [Not Recovered/Not Resolved]
  - White blood cell count decreased [Not Recovered/Not Resolved]
  - Neoplasm progression [Not Recovered/Not Resolved]
  - Haemoglobin decreased [Not Recovered/Not Resolved]
  - Sepsis [Recovered/Resolved]

NARRATIVE: CASE EVENT DATE: 20181231
